FAERS Safety Report 18247726 (Version 1)
Quarter: 2020Q3

REPORT INFORMATION
  Report Type: Report from Study
  Country: CA (occurrence: CA)
  Receive Date: 20200909
  Receipt Date: 20200909
  Transmission Date: 20201103
  Serious: Yes (Other)
  Sender: FDA-Public Use
  Company Number: CA-JNJFOC-20200849092

PATIENT
  Age: 71 Year
  Sex: Female

DRUGS (23)
  1. ROSUVASTATIN. [Concomitant]
     Active Substance: ROSUVASTATIN
  2. VENTOLIN [Concomitant]
     Active Substance: ALBUTEROL SULFATE
  3. LASIX [Concomitant]
     Active Substance: FUROSEMIDE
  4. ROSUVASTATIN. [Concomitant]
     Active Substance: ROSUVASTATIN
  5. UPTRAVI [Suspect]
     Active Substance: SELEXIPAG
     Indication: PULMONARY ARTERIAL HYPERTENSION
     Route: 048
     Dates: start: 20200817
  6. PREDNISONE. [Concomitant]
     Active Substance: PREDNISONE
  7. DEXTRAN [Concomitant]
     Active Substance: DEXTRAN
  8. ZOPICLONE [Concomitant]
     Active Substance: ZOPICLONE
  9. FERROUS FUMARATE [Concomitant]
     Active Substance: FERROUS FUMARATE
  10. CHLORTAB                           /00072502/ [Concomitant]
     Active Substance: CHLORPHENIRAMINE MALEATE
  11. BISOPROLOL [Concomitant]
     Active Substance: BISOPROLOL
  12. UMECLIDINIUM [Concomitant]
     Active Substance: UMECLIDINIUM BROMIDE
  13. REACTIN                            /00884302/ [Concomitant]
     Active Substance: CETIRIZINE HYDROCHLORIDE
  14. ADCIRCA [Concomitant]
     Active Substance: TADALAFIL
  15. TOBRAMYCIN. [Concomitant]
     Active Substance: TOBRAMYCIN
  16. ELIQUIS [Concomitant]
     Active Substance: APIXABAN
  17. CRESTOR [Concomitant]
     Active Substance: ROSUVASTATIN CALCIUM
  18. PANTOLOC                           /01263201/ [Concomitant]
     Active Substance: PANTOPRAZOLE SODIUM
  19. SALBUTAMOL [Concomitant]
     Active Substance: ALBUTEROL
  20. PERINDOPRIL [Concomitant]
     Active Substance: PERINDOPRIL
  21. DICLOFENAC [Concomitant]
     Active Substance: DICLOFENAC
  22. AZATHIOPRINE. [Concomitant]
     Active Substance: AZATHIOPRINE
  23. HYDRALAZINE [Concomitant]
     Active Substance: HYDRALAZINE HYDROCHLORIDE

REACTIONS (1)
  - Back pain [Unknown]

NARRATIVE: CASE EVENT DATE: 20200825
